FAERS Safety Report 5325231-8 (Version None)
Quarter: 2007Q2

REPORT INFORMATION
  Report Type: 
  Country: None (occurrence: None)
  Receive Date: 20070515
  Receipt Date: 20070508
  Transmission Date: 20071010
  Serious: Yes (Hospitalization)
  Sender: FDA-Public Use
  Company Number: US-ROCHE-490659

PATIENT
  Age: 15 Year
  Sex: Male

DRUGS (2)
  1. TAMIFLU [Suspect]
     Route: 065
     Dates: start: 20070306, end: 20070311
  2. ADDERALL XR 10 [Concomitant]
     Dosage: REPORTED AS 30 MG EVERY MORNING

REACTIONS (6)
  - DELIRIUM [None]
  - DRUG HYPERSENSITIVITY [None]
  - ENCEPHALITIS [None]
  - FEELING ABNORMAL [None]
  - MENTAL STATUS CHANGES [None]
  - PSYCHOTIC DISORDER [None]
